FAERS Safety Report 5441254-2 (Version None)
Quarter: 2007Q3

REPORT INFORMATION
  Report Type: 
  Country: None (occurrence: None)
  Receive Date: 20070901
  Receipt Date: 20070824
  Transmission Date: 20080115
  Serious: Yes (Hospitalization, Other)
  Sender: FDA-Public Use
  Company Number: US-PFIZER INC-2007071070

PATIENT
  Sex: Male
  Weight: 121.6 kg

DRUGS (6)
  1. LIPITOR [Suspect]
     Indication: BLOOD CHOLESTEROL
  2. NEXIUM [Concomitant]
  3. ASACOL [Concomitant]
  4. PLAVIX [Concomitant]
  5. ASPIRIN [Concomitant]
  6. ALTACE [Concomitant]

REACTIONS (8)
  - ABDOMINAL PAIN [None]
  - DISORIENTATION [None]
  - GASTROOESOPHAGEAL REFLUX DISEASE [None]
  - HEPATITIS C [None]
  - IRRITABLE BOWEL SYNDROME [None]
  - MEMORY IMPAIRMENT [None]
  - MYOCARDIAL INFARCTION [None]
  - SWELLING [None]
